FAERS Safety Report 5504023-0 (Version None)
Quarter: 2007Q4

REPORT INFORMATION
  Report Type: 
  Country: None (occurrence: None)
  Receive Date: 20071101
  Receipt Date: 20071029
  Transmission Date: 20080405
  Serious: Yes (Hospitalization)
  Sender: FDA-Public Use
  Company Number: IT-ROCHE-521576

PATIENT
  Age: 66 Year
  Sex: Female

DRUGS (2)
  1. XELODA [Suspect]
     Indication: BREAST CANCER
     Route: 048
     Dates: start: 20070501, end: 20070918
  2. LAPATINIB [Concomitant]
     Dosage: TRADE NAME UNKNOWN

REACTIONS (2)
  - OLIGURIA [None]
  - RENAL FAILURE ACUTE [None]
